FAERS Safety Report 8153923-4 (Version None)
Quarter: 2012Q1

REPORT INFORMATION
  Report Type: 
  Country: None (occurrence: None)
  Receive Date: 20120221
  Receipt Date: 20120221
  Transmission Date: 20120608
  Serious: No
  Sender: FDA-Public Use
  Company Number: None

PATIENT
  Age: 72 Year
  Sex: Female
  Weight: 90.718 kg

DRUGS (1)
  1. TYLENOL PM EXTRA STRENGTH [Suspect]
     Indication: INSOMNIA
     Dosage: ONE TYLENOL PM EXTRA STRENGTH
     Dates: start: 20120217, end: 20120217

REACTIONS (2)
  - PANIC ATTACK [None]
  - ABNORMAL DREAMS [None]
